FAERS Safety Report 6715257-1 (Version None)
Quarter: 2010Q2

REPORT INFORMATION
  Report Type: 
  Country: None (occurrence: None)
  Receive Date: 20100507
  Receipt Date: 20100427
  Transmission Date: 20101027
  Serious: Yes (Other)
  Sender: FDA-Public Use
  Company Number: US-PERRIGO-10US009197

PATIENT
  Sex: Female
  Weight: 58.05 kg

DRUGS (2)
  1. NAPROXEN SODIUM [Suspect]
     Indication: HEADACHE
     Dosage: 440 MG, SINGLE
     Route: 048
     Dates: start: 20100406, end: 20100406
  2. NAPROXEN SODIUM [Suspect]
     Indication: MUSCULOSKELETAL DISCOMFORT
     Dosage: 440 MG, SINGLE
     Route: 048
     Dates: start: 20100423, end: 20100423

REACTIONS (9)
  - ANAPHYLACTIC REACTION [None]
  - ERYTHEMA [None]
  - EYE SWELLING [None]
  - HEADACHE [None]
  - LIP SWELLING [None]
  - OCULAR HYPERAEMIA [None]
  - PHARYNGEAL OEDEMA [None]
  - RASH [None]
  - SWOLLEN TONGUE [None]
